FAERS Safety Report 24784102 (Version 1)
Quarter: 2024Q4

REPORT INFORMATION
  Report Type: Spontaneous
  Country: IE (occurrence: IE)
  Receive Date: 20241227
  Receipt Date: 20241227
  Transmission Date: 20250115
  Serious: Yes (Other)
  Sender: TEVA
  Company Number: None

PATIENT
  Age: 42 Year
  Sex: Female

DRUGS (2)
  1. DEXAMETHASONE [Suspect]
     Active Substance: DEXAMETHASONE
     Indication: Renal transplant
     Route: 065
  2. ELTROMBOPAG OLAMINE [Concomitant]
     Active Substance: ELTROMBOPAG OLAMINE
     Indication: Product used for unknown indication
     Route: 048

REACTIONS (6)
  - Pyrexia [Not Recovered/Not Resolved]
  - Splenomegaly [Not Recovered/Not Resolved]
  - Malaise [Not Recovered/Not Resolved]
  - Full blood count abnormal [Not Recovered/Not Resolved]
  - Autoantibody test [Not Recovered/Not Resolved]
  - Thrombocytopenia [Not Recovered/Not Resolved]
